FAERS Safety Report 7282733-5 (Version None)
Quarter: 2011Q1

REPORT INFORMATION
  Report Type: 
  Country: None (occurrence: None)
  Receive Date: 20110209
  Receipt Date: 20110126
  Transmission Date: 20110831
  Serious: Yes (Death, Hospitalization, Other)
  Sender: FDA-Public Use
  Company Number: JP-AMGEN-JPNCT2011002127

PATIENT
  Age: 78 Year
  Sex: Male
  Weight: 70 kg

DRUGS (18)
  1. OLMETEC [Concomitant]
     Route: 048
     Dates: end: 20101218
  2. PANITUMUMAB [Suspect]
     Dosage: 6 MG/KG, Q2WK
     Route: 041
     Dates: start: 20101110, end: 20101124
  3. MINOMYCIN [Concomitant]
     Route: 048
  4. HIRUDOID SOFT [Concomitant]
     Route: 062
  5. TERRA-CORTRIL OINTMENT [Concomitant]
     Route: 062
  6. NIFELAT L [Concomitant]
     Route: 048
     Dates: end: 20101218
  7. OXALIPLATIN [Suspect]
     Indication: COLORECTAL CANCER
     Route: 041
     Dates: start: 20101019, end: 20101124
  8. ITOROL [Concomitant]
     Route: 048
     Dates: end: 20101218
  9. FLUOROURACIL [Suspect]
     Indication: COLORECTAL CANCER
     Route: 040
     Dates: start: 20101019, end: 20101124
  10. CALCIUM LEVOFOLINATE [Suspect]
     Indication: COLORECTAL CANCER
     Route: 041
     Dates: start: 20101019, end: 20101124
  11. ARTIST [Concomitant]
     Route: 048
     Dates: end: 20101218
  12. ASPIRIN [Concomitant]
     Route: 048
     Dates: end: 20101218
  13. STEROID ANTIBACTERIALS [Concomitant]
  14. PANITUMUMAB [Suspect]
     Indication: COLORECTAL CANCER
     Dosage: 6 MG/KG, Q2WK
     Route: 041
     Dates: start: 20101019, end: 20101019
  15. FLUOROURACIL [Suspect]
     Route: 041
     Dates: start: 20101019, end: 20101124
  16. TERRA-CORTRIL [Concomitant]
     Route: 062
  17. NATRIX [Concomitant]
     Route: 048
     Dates: end: 20101218
  18. LIPITOR [Concomitant]
     Route: 048
     Dates: end: 20101218

REACTIONS (5)
  - DIARRHOEA [None]
  - STOMATITIS [None]
  - DERMATITIS ACNEIFORM [None]
  - INTERSTITIAL LUNG DISEASE [None]
  - DRY SKIN [None]
